FAERS Safety Report 8085407-6 (Version None)
Quarter: 2012Q1

REPORT INFORMATION
  Report Type: 
  Country: None (occurrence: None)
  Receive Date: 20120128
  Receipt Date: 20110418
  Transmission Date: 20120608
  Serious: No
  Sender: FDA-Public Use
  Company Number: US-ABBOTT-11P-163-0700403-00

PATIENT
  Sex: Female
  Weight: 77.18 kg

DRUGS (17)
  1. HUMIRA [Suspect]
     Indication: CROHN'S DISEASE
     Dosage: LOADING DOSE 160MG ONLY
     Dates: start: 20110121, end: 20110201
  2. KLONOPIN [Concomitant]
     Indication: INSOMNIA
  3. VITAMIN D [Concomitant]
     Indication: PRODUCT USED FOR UNKNOWN INDICATION
  4. MULTIPLE VITAMINS [Concomitant]
  5. OXYCONTIN [Concomitant]
     Indication: BACK PAIN
  6. OXYCONTIN [Concomitant]
     Indication: INTERVERTEBRAL DISC DEGENERATION
  7. FLEXERIL [Concomitant]
     Indication: BACK PAIN
  8. PROBIOTICS [Concomitant]
     Indication: MEDICAL DIET
     Dosage: DAILY
  9. BIOTIN [Concomitant]
     Indication: PRODUCT USED FOR UNKNOWN INDICATION
  10. HUMIRA [Suspect]
     Dosage: LOADING DOSE 160MG ONLY
     Dates: start: 20110122, end: 20110122
  11. KLONOPIN [Concomitant]
     Indication: ARTHRALGIA
  12. ESTRATEST [Concomitant]
     Indication: HORMONE REPLACEMENT THERAPY
  13. VICODIN [Concomitant]
     Indication: EPICONDYLITIS
     Dosage: 1 AT BEDTIME, WHEN NOT ICING
  14. FISH OIL [Concomitant]
     Indication: PRODUCT USED FOR UNKNOWN INDICATION
  15. CALCIUM [Concomitant]
     Indication: PRODUCT USED FOR UNKNOWN INDICATION
  16. HUMIRA [Suspect]
  17. NEXIUM [Concomitant]
     Indication: DYSPEPSIA
     Dosage: DAILY

REACTIONS (17)
  - BALANCE DISORDER [None]
  - PYREXIA [None]
  - FEELING ABNORMAL [None]
  - NAUSEA [None]
  - ALOPECIA [None]
  - CHILLS [None]
  - FLATULENCE [None]
  - MENTAL IMPAIRMENT [None]
  - DIARRHOEA [None]
  - FATIGUE [None]
  - AMNESIA [None]
  - INSOMNIA [None]
  - PSORIASIS [None]
  - ECZEMA [None]
  - HEADACHE [None]
  - DYSPNOEA [None]
  - ARTHRALGIA [None]
